FAERS Safety Report 6735650-0 (Version None)
Quarter: 2010Q2

REPORT INFORMATION
  Report Type: 
  Country: None (occurrence: None)
  Receive Date: 20100521
  Receipt Date: 20100510
  Transmission Date: 20101027
  Serious: Yes (Other)
  Sender: FDA-Public Use
  Company Number: PHHY2010FR22866

PATIENT
  Sex: Male
  Weight: 76 kg

DRUGS (4)
  1. TEGRETOL [Suspect]
     Route: 048
  2. TRILEPTAL [Suspect]
     Indication: BIPOLAR I DISORDER
     Dosage: 900 MG, DAILY
     Route: 048
     Dates: start: 20090616
  3. ESCITALOPRAM [Concomitant]
     Indication: DEPRESSION
     Dosage: 10 MG, DAILY
     Route: 048
     Dates: start: 20090616
  4. BUSPAR [Concomitant]
     Indication: ANXIETY
     Dosage: 1.5 TAB/DAY
     Route: 048
     Dates: start: 20091218

REACTIONS (4)
  - CONJUNCTIVITIS [None]
  - DRY EYE [None]
  - EYE DISORDER [None]
  - SINUSITIS [None]
